FAERS Safety Report 8552194 (Version 4)
Quarter: 2013Q2

REPORT INFORMATION
  Report Type: Report from Study
  Country: DE (occurrence: DE)
  Receive Date: 20120508
  Receipt Date: 20130521
  Transmission Date: 20140414
  Serious: Yes (Hospitalization)
  Sender: FDA-Public Use
  Company Number: DE-GLAXOSMITHKLINE-B0784520B

PATIENT
  Age: 50 Year
  Sex: Female
  Weight: 78 kg

DRUGS (7)
  1. LAPATINIB [Suspect]
     Indication: BREAST CANCER
     Dosage: 750MG PER DAY
     Route: 065
     Dates: start: 20120124
  2. PACLITAXEL [Suspect]
     Indication: BREAST CANCER
     Dosage: 147MG WEEKLY
     Route: 065
     Dates: start: 20120124
  3. MYOCET [Suspect]
     Indication: BREAST CANCER
     Dosage: 37MG WEEKLY
     Route: 065
     Dates: start: 20120124
  4. HERCEPTIN [Suspect]
     Indication: BREAST CANCER
     Dosage: 468MG EVERY 3 WEEKS
     Route: 065
     Dates: start: 20120124
  5. CEFUROXIM [Concomitant]
     Dosage: 500MG TWICE PER DAY
     Dates: start: 20120502, end: 20120511
  6. NEUPOGEN [Concomitant]
     Dates: start: 20120509
  7. FUCICORT [Concomitant]
     Dates: start: 20120509

REACTIONS (1)
  - Pyrexia [Recovered/Resolved]
